FAERS Safety Report 6803415-7 (Version None)
Quarter: 2010Q2

REPORT INFORMATION
  Report Type: 
  Country: None (occurrence: None)
  Receive Date: 20100628
  Receipt Date: 20100622
  Transmission Date: 20101027
  Serious: Yes (Hospitalization)
  Sender: FDA-Public Use
  Company Number: AT-ROCHE-710763

PATIENT
  Age: 80 Year
  Sex: Male
  Weight: 76 kg

DRUGS (1)
  1. AVASTIN [Suspect]
     Dosage: STRENGTH: 25 MG/ML
     Route: 031
     Dates: start: 20100525

REACTIONS (1)
  - EYE INFLAMMATION [None]
